FAERS Safety Report 4269808-X (Version None)
Quarter: 2004Q1

REPORT INFORMATION
  Report Type: 
  Country: None (occurrence: None)
  Receive Date: 20040112
  Receipt Date: 20040106
  Transmission Date: 20041129
  Serious: Yes (Hospitalization, Other)
  Sender: FDA-Public Use
  Company Number: 200313424BCC

PATIENT
  Age: 54 Year
  Sex: Male
  Weight: 79.8331 kg

DRUGS (2)
  1. ALEVE [Suspect]
     Indication: MUSCLE STRAIN
     Dosage: 220 MG, QD, ORAL
     Route: 048
     Dates: start: 20030916, end: 20030919
  2. ALEVE [Suspect]
     Indication: MYALGIA
     Dosage: 220 MG, QD, ORAL
     Route: 048
     Dates: start: 20030916, end: 20030919

REACTIONS (4)
  - ARRHYTHMIA [None]
  - CHEST DISCOMFORT [None]
  - DYSPNOEA [None]
  - SWELLING [None]
